FAERS Safety Report 8047575-1 (Version None)
Quarter: 2012Q1

REPORT INFORMATION
  Report Type: 
  Country: None (occurrence: None)
  Receive Date: 20120116
  Receipt Date: 20120116
  Transmission Date: 20120608
  Serious: Yes (Death)
  Sender: FDA-Public Use
  Company Number: US-GLAXOSMITHKLINE-A0951286A

PATIENT
  Age: 82 Year
  Sex: Female

DRUGS (12)
  1. CALCIUM [Concomitant]
  2. SYNTHROID [Concomitant]
  3. AROMASIN [Concomitant]
  4. ZOCOR [Concomitant]
  5. ADVAIR DISKUS 100/50 [Suspect]
     Indication: LUNG CANCER METASTATIC
     Route: 055
  6. GLYBURIDE [Concomitant]
  7. VICODIN [Concomitant]
  8. ATENOLOL [Concomitant]
  9. LASIX [Concomitant]
  10. ALDACTONE [Concomitant]
  11. COUMADIN [Concomitant]
  12. IRON [Concomitant]

REACTIONS (2)
  - BREAST CANCER [None]
  - METASTASES TO LUNG [None]
